FAERS Safety Report 9700164 (Version 1)
Quarter: 2013Q4

REPORT INFORMATION
  Report Type: Spontaneous
  Country: US (occurrence: None)
  Receive Date: 20131118
  Receipt Date: 20131118
  Transmission Date: 20140711
  Serious: Yes (Other)
  Sender: FDA-Public Use
  Company Number: 13-04703

PATIENT
  Age: 23 Year
  Sex: 0

DRUGS (1)
  1. ALBUTEROL SULFATE INHALATION SOLUTION [Suspect]
     Indication: ASTHMA

REACTIONS (3)
  - Caesarean section [None]
  - Drug ineffective [None]
  - Maternal drugs affecting foetus [None]
